FAERS Safety Report 4609694-9 (Version None)
Quarter: 2005Q1

REPORT INFORMATION
  Report Type: 
  Country: None (occurrence: None)
  Receive Date: 20050314
  Receipt Date: 20050302
  Transmission Date: 20050727
  Serious: Yes (Hospitalization)
  Sender: FDA-Public Use
  Company Number: 2005PK00391

PATIENT
  Age: 28 Month
  Sex: Female
  Weight: 8.5 kg

DRUGS (1)
  1. OMEPRAZOLE [Suspect]
     Indication: REFLUX OESOPHAGITIS
     Dosage: 10 MG DAILY PO
     Route: 048
     Dates: start: 20041021, end: 20041103

REACTIONS (10)
  - BLOOD PRESSURE DIASTOLIC DECREASED [None]
  - BRADYARRHYTHMIA [None]
  - BRADYCARDIA [None]
  - COMA [None]
  - HYPERHIDROSIS [None]
  - HYPOTHERMIA [None]
  - HYPOTONIA [None]
  - MIOSIS [None]
  - REFUSAL OF TREATMENT BY RELATIVE [None]
  - SOMNOLENCE [None]
